FAERS Safety Report 21190839 (Version 2)
Quarter: 2022Q3

REPORT INFORMATION
  Report Type: Spontaneous
  Country: FR (occurrence: FR)
  Receive Date: 20220809
  Receipt Date: 20220817
  Transmission Date: 20221026
  Serious: Yes (Other)
  Sender: FDA-Public Use
  Company Number: FR-BEH-2022143995

PATIENT
  Sex: Male
  Weight: 84 kg

DRUGS (3)
  1. HUMAN IMMUNOGLOBULIN G [Suspect]
     Active Substance: HUMAN IMMUNOGLOBULIN G
     Indication: Transplant rejection
     Dosage: UNK
     Route: 042
  2. BERINERT [Suspect]
     Active Substance: HUMAN C1-ESTERASE INHIBITOR
     Indication: Transplant rejection
     Dosage: 1680 INTERNATIONAL UNIT
     Route: 065
     Dates: start: 20220215, end: 20220328
  3. BERINERT [Suspect]
     Active Substance: HUMAN C1-ESTERASE INHIBITOR
     Dosage: 1680 INTERNATIONAL UNIT
     Route: 065
     Dates: start: 20220215, end: 20220330

REACTIONS (2)
  - Heart transplant [Unknown]
  - Off label use [Unknown]

NARRATIVE: CASE EVENT DATE: 20220330
